FAERS Safety Report 8423584-5 (Version None)
Quarter: 2012Q2

REPORT INFORMATION
  Report Type: 
  Country: None (occurrence: None)
  Receive Date: 20120608
  Receipt Date: 20120525
  Transmission Date: 20120825
  Serious: Yes (Hospitalization, Other)
  Sender: FDA-Public Use
  Company Number: CA-AMGEN-CANSP2012032870

PATIENT
  Sex: Female

DRUGS (1)
  1. XGEVA [Suspect]
     Indication: BREAST CANCER METASTATIC
     Dosage: 120 MG, UNK
     Route: 058

REACTIONS (2)
  - HOSPITALISATION [None]
  - HYPOCALCAEMIA [None]
